FAERS Safety Report 15178516 (Version 1)
Quarter: 2018Q3

REPORT INFORMATION
  Report Type: Report from Study
  Country: US (occurrence: US)
  Receive Date: 20180722
  Receipt Date: 20180722
  Transmission Date: 20181010
  Serious: Yes (Hospitalization, Other)
  Sender: FDA-Public Use
  Company Number: US-BIOGEN-2014BI041524

PATIENT
  Age: 56 Year
  Sex: Female

DRUGS (5)
  1. AVONEX [Suspect]
     Active Substance: INTERFERON BETA-1A
     Route: 030
     Dates: start: 20090801
  2. AVONEX [Suspect]
     Active Substance: INTERFERON BETA-1A
     Route: 030
     Dates: start: 20090803
  3. AVONEX [Suspect]
     Active Substance: INTERFERON BETA-1A
     Route: 030
  4. AVONEX [Suspect]
     Active Substance: INTERFERON BETA-1A
     Route: 030
     Dates: start: 20130920
  5. AVONEX [Suspect]
     Active Substance: INTERFERON BETA-1A
     Indication: MULTIPLE SCLEROSIS
     Route: 030
     Dates: start: 2008

REACTIONS (8)
  - Renal impairment [Unknown]
  - Fatigue [Recovered/Resolved]
  - Myocardial infarction [Unknown]
  - Hallucination, auditory [Recovered/Resolved]
  - Cardiomyopathy [Not Recovered/Not Resolved]
  - Mental status changes postoperative [Unknown]
  - Gallbladder disorder [Recovered/Resolved]
  - Anaesthetic complication cardiac [Not Recovered/Not Resolved]

NARRATIVE: CASE EVENT DATE: 201312
